FAERS Safety Report 7916979-7 (Version None)
Quarter: 2011Q4

REPORT INFORMATION
  Report Type: 
  Country: None (occurrence: None)
  Receive Date: 20111116
  Receipt Date: 20111116
  Transmission Date: 20120403
  Serious: Yes (Life-Threatening, Hospitalization, Other)
  Sender: FDA-Public Use
  Company Number: None

PATIENT
  Age: 25 Year
  Sex: Female
  Weight: 90.718 kg

DRUGS (1)
  1. YASMIN [Suspect]
     Indication: CONTRACEPTION
     Dosage: 1
     Dates: start: 20100915, end: 20110725

REACTIONS (3)
  - CONVULSION [None]
  - INTRACRANIAL VENOUS SINUS THROMBOSIS [None]
  - AMNESIA [None]
